FAERS Safety Report 5237768-0 (Version None)
Quarter: 2007Q1

REPORT INFORMATION
  Report Type: 
  Country: None (occurrence: None)
  Receive Date: 20070214
  Receipt Date: 20070202
  Transmission Date: 20070707
  Serious: Yes (Other)
  Sender: FDA-Public Use
  Company Number: JP-JPN-A20052677

PATIENT
  Sex: Female

DRUGS (10)
  1. PAXIL [Suspect]
     Indication: BORDERLINE PERSONALITY DISORDER
     Dosage: 30MG PER DAY
     Route: 048
     Dates: start: 19980101
  2. RITALIN [Concomitant]
     Route: 048
     Dates: start: 20020801
  3. RITALIN [Concomitant]
     Indication: BORDERLINE PERSONALITY DISORDER
     Dosage: 20MG TWICE PER DAY
     Route: 048
     Dates: start: 19980101
  4. ROHYPNOL [Concomitant]
     Route: 048
     Dates: start: 20020801
  5. ROHYPNOL [Concomitant]
     Indication: BORDERLINE PERSONALITY DISORDER
     Dosage: 2MG PER DAY
     Route: 048
     Dates: start: 19980101
  6. SOLANAX [Concomitant]
     Route: 048
     Dates: start: 20020801
  7. SOLANAX [Concomitant]
     Indication: BORDERLINE PERSONALITY DISORDER
     Dosage: .8MG PER DAY
     Route: 048
     Dates: start: 19980101
  8. THEO-DUR [Concomitant]
     Indication: ASTHMA
     Dosage: 200MG TWICE PER DAY
     Route: 048
  9. TAVEGYL [Concomitant]
     Indication: ASTHMA
     Dosage: 1MG TWICE PER DAY
     Route: 048
  10. MUCOSAL [Concomitant]
     Indication: ASTHMA
     Dosage: 15MG PER DAY
     Route: 048

REACTIONS (3)
  - ASTHMA [None]
  - DRUG EXPOSURE DURING PREGNANCY [None]
  - DRUG TOXICITY [None]
